FAERS Safety Report 14092074 (Version 1)
Quarter: 2017Q4

REPORT INFORMATION
  Report Type: Spontaneous
  Country: US (occurrence: US)
  Receive Date: 20171016
  Receipt Date: 20171016
  Transmission Date: 20180321
  Serious: No
  Sender: FDA-Public Use
  Company Number: US-PFIZER INC-2017443648

PATIENT
  Sex: Female

DRUGS (1)
  1. XELJANZ [Suspect]
     Active Substance: TOFACITINIB CITRATE
     Dosage: 5 MG, 2X/DAY
     Dates: start: 20171008

REACTIONS (7)
  - Aphonia [Unknown]
  - Dyspnoea [Unknown]
  - Disturbance in attention [Unknown]
  - Respiratory disorder [Unknown]
  - Cough [Unknown]
  - Headache [Unknown]
  - Vision blurred [Unknown]
